FAERS Safety Report 10166747 (Version 1)
Quarter: 2014Q2

REPORT INFORMATION
  Report Type: Spontaneous
  Country: GB (occurrence: None)
  Receive Date: 20140508
  Receipt Date: 20140508
  Transmission Date: 20141212
  Serious: Yes (Other)
  Sender: FDA-Public Use
  Company Number: AUR-APL-2014-05313

PATIENT
  Age: 72 Year
  Sex: Male
  Weight: 89 kg

DRUGS (9)
  1. TAMSULOSIN (TAMSULOSIN) [Suspect]
     Indication: PRODUCT USED FOR UNKNOWN INDICATION
     Dates: start: 20140406
  2. ASPIRIN (ACETYLSALICYLIC ACID) [Concomitant]
  3. CANDESARTAN (CANDESARTAN) [Concomitant]
  4. ISOSORBIDE MONONITRATE (ISOSORBIDE MONONITRATE) [Concomitant]
  5. LANSOPRAZOLE (LANSOPRAZOLE) [Concomitant]
  6. METOPROLOL (METOPROLOL) [Concomitant]
  7. NITROFURANTOIN (NITROFURANTOIN) [Concomitant]
  8. PROCHLORPERAZINE (PROCHLORPERAZINE) [Concomitant]
  9. SIMVASTATIN (SIMVASTATIN) [Concomitant]

REACTIONS (4)
  - Blister [None]
  - Rhinorrhoea [None]
  - Sneezing [None]
  - Macule [None]
